FAERS Safety Report 26074587 (Version 5)
Quarter: 2025Q4

REPORT INFORMATION
  Report Type: Spontaneous
  Country: US (occurrence: US)
  Receive Date: 20251121
  Receipt Date: 20251223
  Transmission Date: 20260117
  Serious: No
  Sender: KARYOPHARM THERAPEUTICS
  Company Number: US-KARYOPHARM-2025KPT100978

PATIENT

DRUGS (17)
  1. SELINEXOR [Suspect]
     Active Substance: SELINEXOR
     Indication: Plasma cell myeloma
     Dosage: 60 MG WEEKLY
     Route: 048
     Dates: start: 20251114, end: 202511
  2. SELINEXOR [Suspect]
     Active Substance: SELINEXOR
     Dosage: 60 MG WEEKLY
     Route: 048
     Dates: start: 20251122
  3. ACYCLOVIR [Concomitant]
     Active Substance: ACYCLOVIR
  4. BEPREVE [Concomitant]
     Active Substance: BEPOTASTINE BESILATE
  5. CLOBETASOL [Concomitant]
     Active Substance: CLOBETASOL
  6. DEXAMETHASONE [Concomitant]
     Active Substance: DEXAMETHASONE
  7. DICYCLOMINE [Concomitant]
     Active Substance: DICYCLOMINE HYDROCHLORIDE
  8. ELIQUIS [Concomitant]
     Active Substance: APIXABAN
  9. LYRICA [Concomitant]
     Active Substance: PREGABALIN
  10. METOPROLOL TARTRATE [Concomitant]
     Active Substance: METOPROLOL TARTRATE
  11. NYSTATIN [Concomitant]
     Active Substance: NYSTATIN
  12. OLMESARTAN [Concomitant]
     Active Substance: OLMESARTAN
  13. PERCOCET [Concomitant]
     Active Substance: ACETAMINOPHEN\OXYCODONE HYDROCHLORIDE
  14. POMALYST [Concomitant]
     Active Substance: POMALIDOMIDE
  15. PREDNISONE [Concomitant]
     Active Substance: PREDNISONE
  16. SUCRALFATE [Concomitant]
     Active Substance: SUCRALFATE
  17. XGEVA [Concomitant]
     Active Substance: DENOSUMAB

REACTIONS (4)
  - Dysphagia [Not Recovered/Not Resolved]
  - Urinary tract infection [Unknown]
  - Abdominal pain upper [Not Recovered/Not Resolved]
  - Nausea [Not Recovered/Not Resolved]

NARRATIVE: CASE EVENT DATE: 20251101
